FAERS Safety Report 4373799-0 (Version None)
Quarter: 2004Q2

REPORT INFORMATION
  Report Type: 
  Country: None (occurrence: None)
  Receive Date: 20040603
  Receipt Date: 20030514
  Transmission Date: 20050107
  Serious: Yes (Disabling, Other)
  Sender: FDA-Public Use
  Company Number: A03200300331

PATIENT
  Age: 74 Year
  Sex: Female
  Weight: 54.4316 kg

DRUGS (2)
  1. PLAQUENIL [Suspect]
     Indication: SYSTEMIC LUPUS ERYTHEMATOSUS
     Dosage: 200 MG QD - ORAL
     Route: 048
     Dates: start: 20010401
  2. PREDNISONE [Concomitant]

REACTIONS (1)
  - DIZZINESS [None]
